APPROVED DRUG PRODUCT: FOSAPREPITANT DIMEGLUMINE
Active Ingredient: FOSAPREPITANT DIMEGLUMINE
Strength: EQ 150MG BASE/VIAL
Dosage Form/Route: POWDER;INTRAVENOUS
Application: A213199 | Product #001
Applicant: PRAXGEN PHARMACEUTICALS LLC
Approved: Oct 4, 2021 | RLD: No | RS: No | Type: DISCN